FAERS Safety Report 12879883 (Version 2)
Quarter: 2016Q4

REPORT INFORMATION
  Report Type: Spontaneous
  Country: US (occurrence: US)
  Receive Date: 20161025
  Receipt Date: 20161213
  Transmission Date: 20170207
  Serious: No
  Sender: FDA-Public Use
  Company Number: US-PFIZER INC-2016495627

PATIENT
  Age: 45 Year
  Sex: Female

DRUGS (1)
  1. LORAZEPAM. [Suspect]
     Active Substance: LORAZEPAM
     Dosage: UNK

REACTIONS (1)
  - Drug hypersensitivity [Unknown]
